FAERS Safety Report 8958422 (Version 1)
Quarter: 2012Q4

REPORT INFORMATION
  Report Type: Spontaneous
  Country: US (occurrence: None)
  Receive Date: 20121205
  Receipt Date: 20121205
  Transmission Date: 20130627
  Serious: No
  Sender: FDA-Public Use
  Company Number: None

PATIENT
  Sex: Male

DRUGS (2)
  1. ZELBORAF [Suspect]
     Indication: RASH
     Dosage: 240mg  4 tabs BID
  2. ZELBORAF [Suspect]
     Indication: MEDICATION DOSE DECREASED
     Dosage: 240mg  4 tabs BID

REACTIONS (2)
  - Rash [None]
  - Therapy regimen changed [None]
